FAERS Safety Report 5202787-7 (Version None)
Quarter: 2007Q1

REPORT INFORMATION
  Report Type: 
  Country: None (occurrence: None)
  Receive Date: 20070109
  Receipt Date: 20061229
  Transmission Date: 20070707
  Serious: Yes (Other)
  Sender: FDA-Public Use
  Company Number: US-SHR-US-2006-037765

PATIENT
  Age: 32 Year
  Sex: Male

DRUGS (1)
  1. BETASERON [Suspect]
     Dosage: 8 MIU, EVERY 2D AT NIGHTTIME
     Route: 058
     Dates: start: 20050315, end: 20061227

REACTIONS (2)
  - LYMPHADENOPATHY [None]
  - NEOPLASM MALIGNANT [None]
